FAERS Safety Report 21433946 (Version 1)
Quarter: 2022Q4

REPORT INFORMATION
  Report Type: Other
  Country: CA (occurrence: CA)
  Receive Date: 20221010
  Receipt Date: 20221010
  Transmission Date: 20230112
  Serious: Yes (Hospitalization, Other)
  Sender: FDA-Public Use
  Company Number: CA-GLENMARK PHARMACEUTICALS-2022GMK075491

PATIENT

DRUGS (43)
  1. MUPIROCIN [Suspect]
     Active Substance: MUPIROCIN
     Indication: Product used for unknown indication
     Dosage: UNK, FORMULATION: OINTMENT TOPICAL
     Route: 065
  2. ABILIFY [Suspect]
     Active Substance: ARIPIPRAZOLE
     Indication: Product used for unknown indication
     Dosage: UNK
     Route: 065
  3. ARIPIPRAZOLE [Suspect]
     Active Substance: ARIPIPRAZOLE
     Indication: Product used for unknown indication
     Dosage: UNK
     Route: 065
  4. MONTELUKAST SODIUM [Suspect]
     Active Substance: MONTELUKAST SODIUM
     Indication: Product used for unknown indication
     Dosage: UNK
     Route: 065
  5. OMALIZUMAB [Suspect]
     Active Substance: OMALIZUMAB
     Indication: Asthma
     Dosage: 300 MILLIGRAM, (FORMULATION; POWDER AND SOLVENT FOR SOLUTION FOR INJECTION)
     Route: 058
  6. OMALIZUMAB [Suspect]
     Active Substance: OMALIZUMAB
     Dosage: UNK, (FORMULATION; POWDER AND SOLVENT FOR SOLUTION FOR INJECTION)
     Route: 058
  7. OMALIZUMAB [Suspect]
     Active Substance: OMALIZUMAB
     Dosage: 300 MILLIGRAM, (FORMULATION; POWDER AND SOLVENT FOR SOLUTION FOR INJECTION)
     Route: 058
  8. OMALIZUMAB [Suspect]
     Active Substance: OMALIZUMAB
     Dosage: 300 MILLIGRAM, (FORMULATION; POWDER AND SOLVENT FOR SOLUTION FOR INJECTION)
     Route: 058
  9. OMALIZUMAB [Suspect]
     Active Substance: OMALIZUMAB
     Dosage: 300 MILLIGRAM, (FORMULATION; POWDER AND SOLVENT FOR SOLUTION FOR INJECTION)
     Route: 058
  10. OMALIZUMAB [Suspect]
     Active Substance: OMALIZUMAB
     Dosage: UNK, (FORMULATION; POWDER AND SOLVENT FOR SOLUTION FOR INJECTION)
     Route: 058
  11. OMALIZUMAB [Suspect]
     Active Substance: OMALIZUMAB
     Dosage: 300 MILLIGRAM, (FORMULATION; POWDER AND SOLVENT FOR SOLUTION FOR INJECTION)
     Route: 058
  12. OMALIZUMAB [Suspect]
     Active Substance: OMALIZUMAB
     Dosage: 300 MILLIGRAM, (FORMULATION; POWDER AND SOLVENT FOR SOLUTION FOR INJECTION)
     Route: 058
  13. OMALIZUMAB [Suspect]
     Active Substance: OMALIZUMAB
     Dosage: 300 MILLIGRAM, (FORMULATION; POWDER AND SOLVENT FOR SOLUTION FOR INJECTION)
     Route: 058
  14. OMALIZUMAB [Suspect]
     Active Substance: OMALIZUMAB
     Dosage: 300 MILLIGRAM, (FORMULATION; POWDER AND SOLVENT FOR SOLUTION FOR INJECTION)
     Route: 058
  15. OMALIZUMAB [Suspect]
     Active Substance: OMALIZUMAB
     Dosage: 300 MILLIGRAM, (FORMULATION; POWDER AND SOLVENT FOR SOLUTION FOR INJECTION)
     Route: 058
  16. OMALIZUMAB [Suspect]
     Active Substance: OMALIZUMAB
     Dosage: UNK, (FORMULATION; POWDER AND SOLVENT FOR SOLUTION FOR INJECTION)
     Route: 058
  17. OMALIZUMAB [Suspect]
     Active Substance: OMALIZUMAB
     Dosage: 300 MILLIGRAM, (FORMULATION; POWDER AND SOLVENT FOR SOLUTION FOR INJECTION)
     Route: 058
  18. OMALIZUMAB [Suspect]
     Active Substance: OMALIZUMAB
     Dosage: UNK, (FORMULATION; POWDER AND SOLVENT FOR SOLUTION FOR INJECTION)
     Route: 058
  19. OMALIZUMAB [Suspect]
     Active Substance: OMALIZUMAB
     Dosage: 300 MILLIGRAM, (FORMULATION; POWDER AND SOLVENT FOR SOLUTION FOR INJECTION)
     Route: 058
  20. OMALIZUMAB [Suspect]
     Active Substance: OMALIZUMAB
     Dosage: UNK, (FORMULATION; POWDER AND SOLVENT FOR SOLUTION FOR INJECTION)
     Route: 058
  21. OMALIZUMAB [Suspect]
     Active Substance: OMALIZUMAB
     Dosage: 300 MILLIGRAM, (FORMULATION; POWDER AND SOLVENT FOR SOLUTION FOR INJECTION)
     Route: 058
  22. OMALIZUMAB [Suspect]
     Active Substance: OMALIZUMAB
     Dosage: 300 MILLIGRAM, (FORMULATION; POWDER AND SOLVENT FOR SOLUTION FOR INJECTION)
     Route: 058
  23. OMALIZUMAB [Suspect]
     Active Substance: OMALIZUMAB
     Dosage: UNK, (FORMULATION; POWDER AND SOLVENT FOR SOLUTION FOR INJECTION)
     Route: 058
  24. OMALIZUMAB [Suspect]
     Active Substance: OMALIZUMAB
     Dosage: UNK, (FORMULATION; POWDER AND SOLVENT FOR SOLUTION FOR INJECTION)
     Route: 058
  25. OMALIZUMAB [Suspect]
     Active Substance: OMALIZUMAB
     Dosage: 300 MILLIGRAM, (FORMULATION; POWDER AND SOLVENT FOR SOLUTION FOR INJECTION)
     Route: 058
  26. OMALIZUMAB [Suspect]
     Active Substance: OMALIZUMAB
     Dosage: 300 MILLIGRAM, (FORMULATION; POWDER AND SOLVENT FOR SOLUTION FOR INJECTION)
     Route: 058
  27. OMALIZUMAB [Suspect]
     Active Substance: OMALIZUMAB
     Dosage: 300 MILLIGRAM, (FORMULATION; POWDER AND SOLVENT FOR SOLUTION FOR INJECTION)
     Route: 058
  28. OMALIZUMAB [Suspect]
     Active Substance: OMALIZUMAB
     Dosage: 300 MILLIGRAM, (FORMULATION; POWDER AND SOLVENT FOR SOLUTION FOR INJECTION)
     Route: 058
  29. OMALIZUMAB [Suspect]
     Active Substance: OMALIZUMAB
     Dosage: UNK, (FORMULATION; POWDER AND SOLVENT FOR SOLUTION FOR INJECTION)
     Route: 058
  30. OMALIZUMAB [Suspect]
     Active Substance: OMALIZUMAB
     Dosage: UNK, (FORMULATION; POWDER AND SOLVENT FOR SOLUTION FOR INJECTION)
     Route: 058
  31. OMALIZUMAB [Suspect]
     Active Substance: OMALIZUMAB
     Dosage: UNK, (FORMULATION; POWDER AND SOLVENT FOR SOLUTION FOR INJECTION)
     Route: 058
  32. OMALIZUMAB [Suspect]
     Active Substance: OMALIZUMAB
     Dosage: UNK, (FORMULATION; POWDER AND SOLVENT FOR SOLUTION FOR INJECTION)
     Route: 058
  33. OMALIZUMAB [Suspect]
     Active Substance: OMALIZUMAB
     Dosage: UNK, (FORMULATION; POWDER AND SOLVENT FOR SOLUTION FOR INJECTION)
     Route: 058
  34. OMALIZUMAB [Suspect]
     Active Substance: OMALIZUMAB
     Dosage: UNK, (FORMULATION; POWDER AND SOLVENT FOR SOLUTION FOR INJECTION)
     Route: 058
  35. OMALIZUMAB [Suspect]
     Active Substance: OMALIZUMAB
     Dosage: 300 MILLIGRAM, (FORMULATION; POWDER AND SOLVENT FOR SOLUTION FOR INJECTION)
     Route: 058
  36. OMALIZUMAB [Suspect]
     Active Substance: OMALIZUMAB
     Indication: Asthma
     Dosage: 300 MILLIGRAM
     Route: 058
  37. SULFAMETHIZOLE [Suspect]
     Active Substance: SULFAMETHIZOLE
     Indication: Product used for unknown indication
     Dosage: UNK
     Route: 065
  38. VENLAFAXINE [Suspect]
     Active Substance: VENLAFAXINE HYDROCHLORIDE
     Indication: Product used for unknown indication
     Dosage: UNK
     Route: 065
  39. GLYCOPYRROLATE [Concomitant]
     Active Substance: GLYCOPYRROLATE
     Indication: Asthma
     Dosage: 1 DOSAGE FORM
  40. GLYCOPYRROLATE [Concomitant]
     Active Substance: GLYCOPYRROLATE
     Dosage: 2 DOSAGE FORM, 1 EVERY 1 DAYS
  41. SINGULAIR [Concomitant]
     Active Substance: MONTELUKAST SODIUM
     Indication: Product used for unknown indication
     Dosage: 1 DOSAGE FORM
     Route: 065
  42. ZENHALE [Concomitant]
     Active Substance: FORMOTEROL FUMARATE\MOMETASONE FUROATE
     Indication: Product used for unknown indication
     Dosage: 2 DOSAGE FORM, 1 EVERY 1 DAYS
  43. ZENHALE [Concomitant]
     Active Substance: FORMOTEROL FUMARATE\MOMETASONE FUROATE
     Indication: Product used for unknown indication
     Dosage: 2 DOSAGE FORM, 1 EVERY 1 DAYS, (FORMULATION; AEROSOL, METERED DOSE)

REACTIONS (45)
  - Accident [Not Recovered/Not Resolved]
  - Arthralgia [Not Recovered/Not Resolved]
  - Asthma [Not Recovered/Not Resolved]
  - Blood pressure increased [Not Recovered/Not Resolved]
  - Body temperature abnormal [Not Recovered/Not Resolved]
  - Bronchitis [Not Recovered/Not Resolved]
  - Concussion [Not Recovered/Not Resolved]
  - Dysphonia [Not Recovered/Not Resolved]
  - Dysstasia [Not Recovered/Not Resolved]
  - Ear pain [Not Recovered/Not Resolved]
  - Extrapyramidal disorder [Not Recovered/Not Resolved]
  - Fall [Not Recovered/Not Resolved]
  - Fatigue [Not Recovered/Not Resolved]
  - Gait disturbance [Not Recovered/Not Resolved]
  - Heart rate increased [Not Recovered/Not Resolved]
  - Humidity intolerance [Not Recovered/Not Resolved]
  - Illness [Not Recovered/Not Resolved]
  - Influenza [Not Recovered/Not Resolved]
  - Ligament sprain [Not Recovered/Not Resolved]
  - Mental disorder [Not Recovered/Not Resolved]
  - Migraine [Not Recovered/Not Resolved]
  - Muscle disorder [Not Recovered/Not Resolved]
  - Musculoskeletal stiffness [Not Recovered/Not Resolved]
  - Myalgia [Not Recovered/Not Resolved]
  - Nasal congestion [Not Recovered/Not Resolved]
  - Nasal discharge discolouration [Not Recovered/Not Resolved]
  - Neck pain [Not Recovered/Not Resolved]
  - Oropharyngeal pain [Not Recovered/Not Resolved]
  - Rhinorrhoea [Not Recovered/Not Resolved]
  - Weight decreased [Not Recovered/Not Resolved]
  - Road traffic accident [Not Recovered/Not Resolved]
  - Seasonal allergy [Not Recovered/Not Resolved]
  - Secretion discharge [Not Recovered/Not Resolved]
  - Sinus congestion [Not Recovered/Not Resolved]
  - Sinusitis [Not Recovered/Not Resolved]
  - Sneezing [Not Recovered/Not Resolved]
  - Staphylococcal infection [Not Recovered/Not Resolved]
  - Vision blurred [Not Recovered/Not Resolved]
  - Cough [Not Recovered/Not Resolved]
  - Pyrexia [Not Recovered/Not Resolved]
  - Headache [Not Recovered/Not Resolved]
  - Wheezing [Not Recovered/Not Resolved]
  - Dyspnoea [Not Recovered/Not Resolved]
  - Dizziness [Not Recovered/Not Resolved]
  - Drug hypersensitivity [Not Recovered/Not Resolved]
